FAERS Safety Report 10237391 (Version 1)
Quarter: 2014Q2

REPORT INFORMATION
  Report Type: Spontaneous
  Country: GB (occurrence: GB)
  Receive Date: 20140614
  Receipt Date: 20140614
  Transmission Date: 20141212
  Serious: Yes (Life-Threatening)
  Sender: FDA-Public Use
  Company Number: GB-AMGEN-GBRSP2014043674

PATIENT
  Age: 90 Year
  Sex: Male
  Weight: 55 kg

DRUGS (14)
  1. PROLIA [Suspect]
     Indication: BONE DISORDER
     Dosage: 60 MG, UNK
     Route: 058
     Dates: start: 20140514, end: 20140514
  2. ADCAL D3 [Concomitant]
  3. ASPIRIN [Concomitant]
  4. BISOPROLOL [Concomitant]
  5. CO-AMOXICLAV                       /00756801/ [Concomitant]
  6. DIGOXIN [Concomitant]
  7. ENOXAPARIN [Concomitant]
  8. LACTULOSE [Concomitant]
  9. METRONIDAZOLE [Concomitant]
  10. NYSTATIN [Concomitant]
  11. PARACETAMOL [Concomitant]
  12. RANITIDINE [Concomitant]
  13. SENNA                              /00142201/ [Concomitant]
  14. TAZOCIN [Concomitant]

REACTIONS (2)
  - Ventricular tachycardia [Recovering/Resolving]
  - Hypocalcaemia [Recovering/Resolving]
